FAERS Safety Report 9461808 (Version 2)
Quarter: 2013Q4

REPORT INFORMATION
  Report Type: Spontaneous
  Country: US (occurrence: US)
  Receive Date: 20130816
  Receipt Date: 20131017
  Transmission Date: 20140711
  Serious: Yes (Hospitalization, Other)
  Sender: FDA-Public Use
  Company Number: US-NOVOPROD-384958

PATIENT
  Age: 36 Year
  Sex: Male
  Weight: 198.64 kg

DRUGS (3)
  1. VICTOZA [Suspect]
     Indication: TYPE 2 DIABETES MELLITUS
     Dosage: UNK
     Route: 058
     Dates: end: 20130703
  2. PROTONIX [Suspect]
     Indication: GASTROOESOPHAGEAL REFLUX DISEASE
     Dosage: 40 MG QD
     Route: 048
     Dates: end: 20130703
  3. PROTONIX [Suspect]
     Dosage: 40 MG QD; ENTERIC COATED
     Route: 048
     Dates: start: 201307

REACTIONS (7)
  - Drug-induced liver injury [Not Recovered/Not Resolved]
  - Cholelithiasis [Unknown]
  - Fatigue [Unknown]
  - Mental status changes [Unknown]
  - Neurodermatitis [Recovered/Resolved]
  - Dermatitis contact [Recovered/Resolved]
  - Weight decreased [Unknown]
